FAERS Safety Report 18476583 (Version 2)
Quarter: 2025Q2

REPORT INFORMATION
  Report Type: Spontaneous
  Country: US (occurrence: US)
  Receive Date: 20201106
  Receipt Date: 20250621
  Transmission Date: 20250717
  Serious: Yes (Hospitalization, Other)
  Sender: AUROBINDO
  Company Number: US-MLMSERVICE-20201021-2541911-1

PATIENT
  Age: 69 Year
  Sex: Female

DRUGS (2)
  1. QUETIAPINE [Suspect]
     Active Substance: QUETIAPINE
     Indication: Schizophrenia
     Dosage: 150 MILLIGRAM, ONCE A DAY (AT BEDTIME)
     Route: 065
  2. QUETIAPINE [Suspect]
     Active Substance: QUETIAPINE
     Indication: Dementia
     Dosage: 25 MILLIGRAM, TWO TIMES A DAY
     Route: 065

REACTIONS (2)
  - Hypothermia [Recovered/Resolved]
  - Hypoglycaemia [Recovered/Resolved]
